FAERS Safety Report 16246623 (Version 1)
Quarter: 2019Q2

REPORT INFORMATION
  Report Type: Spontaneous
  Country: US (occurrence: US)
  Receive Date: 20190427
  Receipt Date: 20190427
  Transmission Date: 20190711
  Serious: No
  Sender: FDA-Public Use
  Company Number: US-UNITED THERAPEUTICS-UNT-2019-001967

PATIENT
  Age: 45 Year
  Sex: Female
  Weight: 88.44 kg

DRUGS (5)
  1. REMODULIN [Suspect]
     Active Substance: TREPROSTINIL
     Dosage: 0.01125 ?G/KG, CONTINUING
     Route: 058
  2. OPSUMIT [Concomitant]
     Active Substance: MACITENTAN
     Indication: PRODUCT USED FOR UNKNOWN INDICATION
     Dosage: UNK
     Route: 065
  3. REMODULIN [Suspect]
     Active Substance: TREPROSTINIL
     Indication: PULMONARY ARTERIAL HYPERTENSION
     Dosage: 0.00125 ?G/KG, CONTINUING
     Route: 058
     Dates: start: 20190124
  4. REMODULIN [Suspect]
     Active Substance: TREPROSTINIL
     Dosage: 0.01725 ?G/KG, CONTINUING
     Route: 058
  5. PLO GEL MEDIFLO [Suspect]
     Active Substance: LECITHIN\POLOXAMER 407
     Indication: PRODUCT USED FOR UNKNOWN INDICATION
     Dosage: UNK
     Route: 065

REACTIONS (19)
  - Infusion site swelling [Unknown]
  - Infusion site erythema [Unknown]
  - Dizziness [Unknown]
  - Infusion site rash [Unknown]
  - Infusion site warmth [Unknown]
  - Sinus congestion [Unknown]
  - Pain in extremity [Recovering/Resolving]
  - Infusion site pain [Unknown]
  - Skin irritation [Unknown]
  - Arthralgia [Recovering/Resolving]
  - Mobility decreased [Recovered/Resolved]
  - Malaise [Unknown]
  - Back pain [Recovering/Resolving]
  - Infusion site pruritus [Unknown]
  - Nausea [Unknown]
  - Burning sensation [Unknown]
  - Asthenia [Unknown]
  - Headache [Recovered/Resolved]
  - Pain in jaw [Recovered/Resolved]

NARRATIVE: CASE EVENT DATE: 201901
